FAERS Safety Report 11125379 (Version 3)
Quarter: 2018Q2

REPORT INFORMATION
  Report Type: Report from Study
  Country: US (occurrence: US)
  Receive Date: 20150520
  Receipt Date: 20180517
  Transmission Date: 20180711
  Serious: Yes (Death, Hospitalization, Other)
  Sender: FDA-Public Use
  Company Number: US-ACTELION-A-US2014-112661

PATIENT
  Age: 32 Year
  Sex: Female

DRUGS (12)
  1. VELETRI [Suspect]
     Active Substance: EPOPROSTENOL
     Dosage: 32 NG/KG, PER MIN
     Route: 042
  2. ZYRTEC [Concomitant]
     Active Substance: CETIRIZINE HYDROCHLORIDE
     Indication: PRODUCT USED FOR UNKNOWN INDICATION
  3. BETAMETHASONE. [Concomitant]
     Active Substance: BETAMETHASONE
     Indication: PRODUCT USED FOR UNKNOWN INDICATION
  4. TYVASO [Suspect]
     Active Substance: TREPROSTINIL
     Indication: PULMONARY ARTERIAL HYPERTENSION
     Dosage: 54 MCG, 9 BREATHS, Q6HRS
     Route: 055
     Dates: start: 20110512, end: 20141220
  5. ADCIRCA [Concomitant]
     Active Substance: TADALAFIL
     Indication: PULMONARY ARTERIAL HYPERTENSION
     Dosage: UNK
     Dates: end: 20150422
  6. VITAMIN B1 [Concomitant]
     Active Substance: THIAMINE HYDROCHLORIDE
     Indication: PRODUCT USED FOR UNKNOWN INDICATION
  7. IRON [Concomitant]
     Active Substance: IRON
     Indication: PRODUCT USED FOR UNKNOWN INDICATION
  8. ENOXAPARIN [Concomitant]
     Active Substance: ENOXAPARIN
     Indication: PRODUCT USED FOR UNKNOWN INDICATION
     Dosage: 40 MG, QD
  9. MULTIVITAMINS, PLAIN [Concomitant]
     Active Substance: VITAMINS
     Indication: PRODUCT USED FOR UNKNOWN INDICATION
  10. VELETRI [Suspect]
     Active Substance: EPOPROSTENOL
     Indication: PULMONARY ARTERIAL HYPERTENSION
     Dosage: 19 NG/KG, PER MIN
     Route: 042
     Dates: start: 20141216, end: 20150422
  11. VELETRI [Suspect]
     Active Substance: EPOPROSTENOL
     Dosage: 20 NG/KG, PER MIN
     Route: 042
  12. FUROSEMIDE. [Concomitant]
     Active Substance: FUROSEMIDE
     Indication: PRODUCT USED FOR UNKNOWN INDICATION

REACTIONS (35)
  - Female sterilisation [Unknown]
  - Obstetrical procedure [Unknown]
  - Low cardiac output syndrome [Unknown]
  - Drug ineffective [Unknown]
  - Pupil fixed [Fatal]
  - Exposure during pregnancy [Unknown]
  - Heart and lung transplant [Unknown]
  - Cardiac failure [Unknown]
  - Left ventricular failure [Unknown]
  - Retroplacental haematoma [Unknown]
  - Pulmonary arterial hypertension [Unknown]
  - Diarrhoea [Recovering/Resolving]
  - Subarachnoid haemorrhage [Fatal]
  - Caesarean section [Unknown]
  - Right ventricular dilatation [Unknown]
  - Oedema peripheral [Unknown]
  - Postpartum haemorrhage [Recovered/Resolved]
  - Withdrawal of life support [Fatal]
  - Dyspnoea [Unknown]
  - Therapeutic embolisation [Unknown]
  - Disease progression [Unknown]
  - Eye pain [Recovering/Resolving]
  - Brain natriuretic peptide increased [Unknown]
  - Muscular weakness [Unknown]
  - Thrombocytopenia [Not Recovered/Not Resolved]
  - Platelet transfusion [Unknown]
  - Polyuria [Unknown]
  - Decreased appetite [Unknown]
  - Brain compression [Fatal]
  - Premature baby [Unknown]
  - Oedema [Unknown]
  - Lactic acidosis [Unknown]
  - Respiratory failure [Unknown]
  - Pain in jaw [Unknown]
  - Wound complication [Unknown]

NARRATIVE: CASE EVENT DATE: 201503
